FAERS Safety Report 18724242 (Version 1)
Quarter: 2021Q1

REPORT INFORMATION
  Report Type: Spontaneous
  Country: US (occurrence: US)
  Receive Date: 20210108
  Receipt Date: 20210108
  Transmission Date: 20210419
  Serious: No
  Sender: FDA-Public Use
  Company Number: None

PATIENT
  Age: 53 Year
  Sex: Male
  Weight: 73.7 kg

DRUGS (3)
  1. EPCLUSA [Suspect]
     Active Substance: SOFOSBUVIR\VELPATASVIR
     Indication: CHRONIC HEPATITIS C
     Dosage: ?          OTHER DOSE:400/100 MG;?
     Route: 048
     Dates: start: 20201225, end: 20210101
  2. GABAPENTIN. [Concomitant]
     Active Substance: GABAPENTIN
  3. ARIPIPRAZOLE. [Concomitant]
     Active Substance: ARIPIPRAZOLE

REACTIONS (3)
  - Fatigue [None]
  - Somnolence [None]
  - Impaired work ability [None]

NARRATIVE: CASE EVENT DATE: 20210101
